FAERS Safety Report 6226770-8 (Version None)
Quarter: 2009Q2

REPORT INFORMATION
  Report Type: 
  Country: None (occurrence: None)
  Receive Date: 20090612
  Receipt Date: 20090521
  Transmission Date: 20091009
  Serious: No
  Sender: FDA-Public Use
  Company Number: US-ABBOTT-09P-163-0574904-00

PATIENT
  Sex: Female

DRUGS (8)
  1. HUMIRA [Suspect]
     Indication: CROHN'S DISEASE
     Route: 058
     Dates: start: 20050601
  2. SINGULAIR [Concomitant]
     Indication: ASTHMA
     Route: 048
  3. ALBUTEROL [Concomitant]
     Indication: ASTHMA
     Route: 055
  4. DARVOCET [Concomitant]
     Indication: PAIN
     Route: 048
  5. NORVASC [Concomitant]
     Indication: HYPERTENSION
     Route: 048
  6. RANITIDINE [Concomitant]
     Indication: GASTROOESOPHAGEAL REFLUX DISEASE
     Route: 048
  7. VIACTIVE [Concomitant]
     Indication: OSTEOPOROSIS
     Route: 048
  8. ESGIC [Concomitant]
     Indication: MIGRAINE
     Dosage: UNKNOWN
     Route: 048

REACTIONS (5)
  - ABDOMINAL PAIN UPPER [None]
  - CROHN'S DISEASE [None]
  - DIARRHOEA [None]
  - DRUG DOSE OMISSION [None]
  - EXCORIATION [None]
